FAERS Safety Report 4917122-9 (Version None)
Quarter: 2006Q1

REPORT INFORMATION
  Report Type: 
  Country: None (occurrence: None)
  Receive Date: 20060214
  Receipt Date: 20060202
  Transmission Date: 20060701
  Serious: Yes (Hospitalization)
  Sender: FDA-Public Use
  Company Number: FR200602000330

PATIENT
  Age: 73 Year
  Sex: Male

DRUGS (6)
  1. GEMZAR [Suspect]
     Indication: BRONCHIAL CARCINOMA
     Dosage: INTRAVENOUS
     Route: 042
     Dates: start: 20051125
  2. ALLOPURINOL [Concomitant]
  3. CALCIPARINE [Concomitant]
  4. MOTILIUM [Concomitant]
  5. MEDIATENSYL (URAPIDIL) [Concomitant]
  6. FUROSEMIDE [Concomitant]

REACTIONS (4)
  - PNEUMONIA MORAXELLA [None]
  - RASH MACULO-PAPULAR [None]
  - RASH PRURITIC [None]
  - SEPSIS [None]
